FAERS Safety Report 8226528-4 (Version None)
Quarter: 2012Q1

REPORT INFORMATION
  Report Type: 
  Country: None (occurrence: None)
  Receive Date: 20120322
  Receipt Date: 20120314
  Transmission Date: 20120608
  Serious: Yes (Hospitalization)
  Sender: FDA-Public Use
  Company Number: DE-BIOGENIDEC-2011BI040886

PATIENT
  Age: 49 Year
  Sex: Male
  Weight: 102 kg

DRUGS (5)
  1. AVONEX [Suspect]
     Indication: MULTIPLE SCLEROSIS
     Route: 030
     Dates: start: 20081001, end: 20111010
  2. TAMSULOSIN HCL [Concomitant]
     Indication: BLADDER DYSFUNCTION
     Dates: start: 20000101
  3. CITALOPRAM HYDROBROMIDE [Concomitant]
     Indication: DEPRESSION
     Dates: start: 19960101
  4. MIRTAZAPINE [Concomitant]
     Indication: DEPRESSION
     Dates: start: 19960101
  5. ERGOCALCIFEROL [Concomitant]
     Indication: OSTEOPOROSIS PROPHYLAXIS
     Dates: start: 20060101

REACTIONS (3)
  - MULTIPLE SCLEROSIS [None]
  - PAIN [None]
  - FATIGUE [None]
